FAERS Safety Report 5764527-2 (Version None)
Quarter: 2008Q2

REPORT INFORMATION
  Report Type: 
  Country: None (occurrence: None)
  Receive Date: 20080610
  Receipt Date: 20080604
  Transmission Date: 20081010
  Serious: Yes (Hospitalization, Other)
  Sender: FDA-Public Use
  Company Number: GB-ALLERGAN-0806697US

PATIENT
  Sex: Female

DRUGS (2)
  1. BOTOX [Suspect]
     Indication: HYPERTONIC BLADDER
     Dosage: 10 UNITS, UNK
     Route: 030
     Dates: start: 20061208, end: 20061208
  2. BLINDED BOTULINUM TOXIN TYPE A - GENERAL [Suspect]
     Indication: HYPERTONIC BLADDER
     Dosage: 10 UNITS, UNK
     Route: 030
     Dates: start: 20061208, end: 20061208

REACTIONS (3)
  - DYSPHAGIA [None]
  - PLEURISY [None]
  - PNEUMONIA [None]
